FAERS Safety Report 24546154 (Version 1)
Quarter: 2024Q4

REPORT INFORMATION
  Report Type: Spontaneous
  Country: BR (occurrence: BR)
  Receive Date: 20241024
  Receipt Date: 20241024
  Transmission Date: 20250115
  Serious: Yes (Other)
  Sender: SANDOZ
  Company Number: BR-002147023-NVSC2024BR206320

PATIENT
  Age: 40 Year
  Sex: Female

DRUGS (1)
  1. METHYLPHENIDATE HYDROCHLORIDE [Suspect]
     Active Substance: METHYLPHENIDATE HYDROCHLORIDE
     Indication: Product used for unknown indication
     Dosage: 40 MG
     Route: 065

REACTIONS (10)
  - Attention deficit hyperactivity disorder [Unknown]
  - Logorrhoea [Unknown]
  - Discouragement [Unknown]
  - Weight increased [Unknown]
  - Executive dysfunction [Unknown]
  - Thalassaemia minor [Unknown]
  - Suicidal ideation [Unknown]
  - Depressed mood [Unknown]
  - Arthralgia [Unknown]
  - Fatigue [Unknown]
